FAERS Safety Report 6814015-7 (Version None)
Quarter: 2010Q3

REPORT INFORMATION
  Report Type: 
  Country: None (occurrence: None)
  Receive Date: 20100702
  Receipt Date: 20100518
  Transmission Date: 20110219
  Serious: No
  Sender: FDA-Public Use
  Company Number: US-ELI_LILLY_AND_COMPANY-US201005005651

PATIENT
  Age: 27 Year
  Sex: Male

DRUGS (3)
  1. DULOXETINE HYDROCHLORIDE [Suspect]
     Indication: ANXIETY
     Dosage: 60 MG, DAILY (1/D)
  2. DULOXETINE HYDROCHLORIDE [Suspect]
     Dosage: 90 MG, DAILY (1/D)
  3. METOPROLOL TARTRATE [Concomitant]
     Indication: PALPITATIONS
     Dosage: 50 MG, DAILY (1/D)

REACTIONS (3)
  - DRUG WITHDRAWAL SYNDROME [None]
  - HYPERHIDROSIS [None]
  - LIVER INJURY [None]
